FAERS Safety Report 16645434 (Version 4)
Quarter: 2019Q4

REPORT INFORMATION
  Report Type: Spontaneous
  Country: JP (occurrence: JP)
  Receive Date: 20190729
  Receipt Date: 20191002
  Transmission Date: 20200122
  Serious: Yes (Other)
  Sender: FDA-Public Use
  Company Number: JP-UCBSA-2019031745

PATIENT
  Age: 44 Year
  Sex: Female

DRUGS (9)
  1. DEPAKENE-R [Suspect]
     Active Substance: VALPROATE SODIUM
     Dosage: 800 MG DAILY
     Route: 048
     Dates: start: 201209, end: 2012
  2. DEPAKENE-R [Suspect]
     Active Substance: VALPROATE SODIUM
     Indication: PRODUCT USED FOR UNKNOWN INDICATION
     Dosage: 600 MG DAILY
     Route: 048
     Dates: start: 199702
  3. E KEPPRA [Suspect]
     Active Substance: LEVETIRACETAM
     Dosage: 1250 MG DAILY
     Route: 048
     Dates: start: 20121023
  4. E KEPPRA [Suspect]
     Active Substance: LEVETIRACETAM
     Dosage: 1500 MG DAILY
     Route: 048
     Dates: start: 20130514
  5. DEPAKENE-R [Suspect]
     Active Substance: VALPROATE SODIUM
     Dosage: 600 MG DAILY
     Route: 048
     Dates: start: 201203, end: 2012
  6. DEPAKENE-R [Suspect]
     Active Substance: VALPROATE SODIUM
     Dosage: 900 MG DAILY
     Route: 048
     Dates: start: 201210
  7. E KEPPRA [Suspect]
     Active Substance: LEVETIRACETAM
     Indication: EPILEPSY
     Dosage: 750 MG DAILY
     Route: 048
     Dates: start: 20121005, end: 201210
  8. DEPAKENE-R [Suspect]
     Active Substance: VALPROATE SODIUM
     Dosage: 700 MG DAILY
     Route: 048
     Dates: start: 200303
  9. DEPAKENE-R [Suspect]
     Active Substance: VALPROATE SODIUM
     Dosage: 800 MG DAILY
     Route: 048
     Dates: start: 200004

REACTIONS (1)
  - Colitis ulcerative [Recovering/Resolving]

NARRATIVE: CASE EVENT DATE: 2019
